FAERS Safety Report 6941357-7 (Version None)
Quarter: 2010Q3

REPORT INFORMATION
  Report Type: 
  Country: None (occurrence: None)
  Receive Date: 20100825
  Receipt Date: 20100820
  Transmission Date: 20110219
  Serious: No
  Sender: FDA-Public Use
  Company Number: PHHO2010US12454

PATIENT
  Sex: Male
  Weight: 73.7 kg

DRUGS (1)
  1. STI571/CGP57148B T35717+TAB [Suspect]
     Indication: MALIGNANT MELANOMA
     Dosage: 400 MG, BID
     Route: 048
     Dates: start: 20100429

REACTIONS (1)
  - GYNAECOMASTIA [None]
